FAERS Safety Report 4511961-4 (Version None)
Quarter: 2004Q4

REPORT INFORMATION
  Report Type: 
  Country: None (occurrence: None)
  Receive Date: 20041123
  Receipt Date: 20041110
  Transmission Date: 20050328
  Serious: Yes (Hospitalization)
  Sender: FDA-Public Use
  Company Number: 2004-BP-07541BP

PATIENT
  Age: 58 Year
  Sex: Female

DRUGS (14)
  1. SPIRIVA [Suspect]
     Indication: PULMONARY FIBROSIS
     Dosage: 18 MCG (18 MCG) IH
     Route: 055
     Dates: start: 20040607
  2. VICODN (VICODIN) [Concomitant]
  3. VALIUM [Concomitant]
  4. ACETYLSALICYLIC ACID SRT [Concomitant]
  5. OXYCONTIN [Concomitant]
  6. PREVACID [Concomitant]
  7. FOSAMAX [Concomitant]
  8. LOPID [Concomitant]
  9. GUAIFENEX (ENTEX / OLD FORM) [Concomitant]
  10. PREMARIN (ESTROENS CONJUGATED) [Concomitant]
  11. VITAMIN C (ASCORBIC ACID) [Concomitant]
  12. CALCIUM (CALCIUM) [Concomitant]
  13. PROZAC (FLUOXETINE HYDROCHLLORIDE) [Concomitant]
  14. ELAVIL [Concomitant]

REACTIONS (4)
  - DRUG SCREEN POSITIVE [None]
  - PNEUMONIA [None]
  - SQUAMOUS CELL CARCINOMA [None]
  - TOXICOLOGIC TEST ABNORMAL [None]
